FAERS Safety Report 9663037 (Version 1)
Quarter: 2013Q4

REPORT INFORMATION
  Report Type: Spontaneous
  Country: US (occurrence: US)
  Receive Date: 20131031
  Receipt Date: 20131031
  Transmission Date: 20140711
  Serious: Yes (Other)
  Sender: FDA-Public Use
  Company Number: US-SA-2013SA111218

PATIENT
  Sex: Female

DRUGS (5)
  1. APIDRA [Suspect]
     Route: 058
  2. LANTUS [Suspect]
     Route: 051
  3. NOVOLOG [Suspect]
     Route: 065
  4. NOVOLIN [Suspect]
     Route: 065
  5. LEVEMIR [Suspect]
     Route: 065

REACTIONS (4)
  - Retinopathy [Unknown]
  - Blood glucose abnormal [Unknown]
  - Injection site pain [Unknown]
  - Drug ineffective [Unknown]
